FAERS Safety Report 8822364 (Version 1)
Quarter: 2012Q4

REPORT INFORMATION
  Report Type: Report from Study
  Country: JP (occurrence: JP)
  Receive Date: 20121003
  Receipt Date: 20121003
  Transmission Date: 20130627
  Serious: Yes (Hospitalization)
  Sender: FDA-Public Use
  Company Number: JP-VERTEX PHARMACEUTICAL INC.-AE-2012-007462

PATIENT
  Age: 66 Year
  Sex: Male

DRUGS (12)
  1. VX-950 [Suspect]
     Indication: HEPATITIS C
     Dosage: 2250 mg, qd
     Route: 048
     Dates: start: 20120322, end: 20120510
  2. VX-950 [Suspect]
     Dosage: 2250 mg, qd
     Route: 048
     Dates: start: 20120517
  3. PEGINTRON                          /01543001/ [Suspect]
     Indication: HEPATITIS C
     Dosage: 1.5 UNK, UNK
     Route: 058
     Dates: start: 20120322
  4. REBETOL [Suspect]
     Indication: HEPATITIS C
     Dosage: 800 mg, qd
     Route: 048
     Dates: start: 20120322, end: 20120418
  5. REBETOL [Suspect]
     Dosage: 600 mg, qd
     Route: 048
     Dates: start: 20120419, end: 20120425
  6. REBETOL [Suspect]
     Dosage: 400 mg, qd
     Route: 048
     Dates: start: 20120426, end: 20120511
  7. REBETOL [Suspect]
     Dosage: 200 mg, qd
     Route: 048
     Dates: start: 20120517
  8. URSO                               /00465701/ [Concomitant]
     Dosage: 600 mg, qd
     Route: 048
     Dates: end: 20120510
  9. TAKEPRON [Concomitant]
     Dosage: 15 mg, qd
     Route: 048
  10. ZYLORIC [Concomitant]
     Dosage: 100 mg, qd
     Route: 048
  11. NORVASC OD [Concomitant]
     Dosage: 5 mg, qd
     Route: 048
  12. BFLUID [Concomitant]
     Route: 042

REACTIONS (2)
  - Gastritis [Recovered/Resolved]
  - Decreased appetite [Recovered/Resolved]
